FAERS Safety Report 25127430 (Version 1)
Quarter: 2025Q1

REPORT INFORMATION
  Report Type: Spontaneous
  Country: CA (occurrence: CA)
  Receive Date: 20250327
  Receipt Date: 20250327
  Transmission Date: 20250409
  Serious: Yes (Other)
  Sender: CELLTRION
  Company Number: CA-CELLTRION INC.-2025CA008640

PATIENT

DRUGS (5)
  1. RITUXIMAB [Suspect]
     Active Substance: RITUXIMAB
     Indication: Rheumatoid arthritis
     Route: 041
  2. KETOPROFEN [Concomitant]
     Active Substance: KETOPROFEN
  3. METHOTREXATE [Concomitant]
     Active Substance: METHOTREXATE
     Route: 037
  4. PREDNISONE [Concomitant]
     Active Substance: PREDNISONE
  5. SULFASALAZINE [Concomitant]
     Active Substance: SULFASALAZINE

REACTIONS (5)
  - Arterial occlusive disease [Recovered/Resolved]
  - Brain oedema [Recovered/Resolved]
  - Cerebral disorder [Recovered/Resolved]
  - Anaphylactic reaction [Recovered/Resolved]
  - Blood cholesterol increased [Recovered/Resolved]
